FAERS Safety Report 7059560-7 (Version None)
Quarter: 2010Q4

REPORT INFORMATION
  Report Type: 
  Country: None (occurrence: None)
  Receive Date: 20101025
  Receipt Date: 20101013
  Transmission Date: 20110411
  Serious: Yes (Other)
  Sender: FDA-Public Use
  Company Number: PHHY2010JP68717

PATIENT
  Age: 66 Year
  Sex: Female

DRUGS (1)
  1. ZOMETA [Suspect]
     Indication: METASTASES TO BONE

REACTIONS (4)
  - DISTURBANCE IN ATTENTION [None]
  - FALL [None]
  - FRACTURE [None]
  - METASTASES TO BONE [None]
